FAERS Safety Report 15502698 (Version 1)
Quarter: 2018Q4

REPORT INFORMATION
  Report Type: Spontaneous
  Country: US (occurrence: US)
  Receive Date: 20181008
  Receipt Date: 20181008
  Transmission Date: 20190205
  Serious: Yes (Life-Threatening, Hospitalization, Other)
  Sender: FDA-Public Use
  Company Number: None

PATIENT
  Age: 35 Year
  Sex: Female
  Weight: 116.6 kg

DRUGS (4)
  1. EMPAGLIFLOZIN [Suspect]
     Active Substance: EMPAGLIFLOZIN
     Indication: TYPE 2 DIABETES MELLITUS
     Route: 048
     Dates: start: 20180605, end: 20181001
  2. ALBUTEROL HFA INHALER [Concomitant]
  3. LIRAGLUTIDE [Concomitant]
     Active Substance: LIRAGLUTIDE
  4. GLIMEPIRIDE. [Concomitant]
     Active Substance: GLIMEPIRIDE
     Dates: start: 20180904, end: 20181001

REACTIONS (6)
  - Anion gap increased [None]
  - Nausea [None]
  - Palpitations [None]
  - Dyspnoea [None]
  - Euglycaemic diabetic ketoacidosis [None]
  - Dizziness [None]

NARRATIVE: CASE EVENT DATE: 20181001
